FAERS Safety Report 4514494-4 (Version None)
Quarter: 2004Q4

REPORT INFORMATION
  Report Type: 
  Country: None (occurrence: None)
  Receive Date: 20041126
  Receipt Date: 20041122
  Transmission Date: 20050328
  Serious: Yes (Death, Hospitalization)
  Sender: FDA-Public Use
  Company Number: KII-2001-0013155

PATIENT
  Sex: Male

DRUGS (1)
  1. OXYCONTIN [Suspect]
     Indication: PAIN
     Dosage: 80 MG, TID

REACTIONS (4)
  - COMPLETED SUICIDE [None]
  - CONSTIPATION [None]
  - GUN SHOT WOUND [None]
  - HAEMORRHAGE [None]
